FAERS Safety Report 9361475 (Version 1)
Quarter: 2013Q2

REPORT INFORMATION
  Report Type: Spontaneous
  Country: US (occurrence: US)
  Receive Date: 20130621
  Receipt Date: 20130621
  Transmission Date: 20140414
  Serious: Yes (Hospitalization, Other)
  Sender: FDA-Public Use
  Company Number: US-TEVA-413692USA

PATIENT
  Age: 69 Year
  Sex: Female

DRUGS (2)
  1. AMLODIPINE [Suspect]
     Indication: OVERDOSE
     Dosage: INGESTED MULTIPLE PILLS
     Route: 048
  2. ATENOLOL [Suspect]
     Indication: OVERDOSE
     Dosage: INGESTED MULTIPLE PILLS
     Route: 048

REACTIONS (5)
  - Shock [Recovered/Resolved]
  - Shock [Recovered/Resolved]
  - Suicide attempt [Recovered/Resolved]
  - Overdose [Recovered/Resolved]
  - Ventricular fibrillation [Recovered/Resolved]
